FAERS Safety Report 7823137-3 (Version None)
Quarter: 2011Q4

REPORT INFORMATION
  Report Type: 
  Country: None (occurrence: None)
  Receive Date: 20111019
  Receipt Date: 20091221
  Transmission Date: 20120403
  Serious: No
  Sender: FDA-Public Use
  Company Number: US-BIOGENIDEC-2009BI036799

PATIENT
  Sex: Female

DRUGS (1)
  1. TYSABRI [Suspect]
     Indication: MULTIPLE SCLEROSIS
     Route: 042
     Dates: start: 20071019

REACTIONS (19)
  - FALL [None]
  - HYPOAESTHESIA [None]
  - NECK PAIN [None]
  - PAIN IN EXTREMITY [None]
  - COORDINATION ABNORMAL [None]
  - FATIGUE [None]
  - DEPRESSION [None]
  - HEADACHE [None]
  - CHRONIC SINUSITIS [None]
  - THROAT IRRITATION [None]
  - BRONCHITIS [None]
  - CYST [None]
  - SEASONAL ALLERGY [None]
  - OPTIC NEURITIS [None]
  - MUSCLE SPASMS [None]
  - DYSPHEMIA [None]
  - DYSARTHRIA [None]
  - DYSPHONIA [None]
  - SPEECH DISORDER [None]
